FAERS Safety Report 9889696 (Version 1)
Quarter: 2014Q1

REPORT INFORMATION
  Report Type: Spontaneous
  Country: US (occurrence: US)
  Receive Date: 20140211
  Receipt Date: 20140211
  Transmission Date: 20141002
  Serious: Yes (Other)
  Sender: FDA-Public Use
  Company Number: US-PFIZER INC-2014036181

PATIENT
  Sex: Female

DRUGS (1)
  1. VENLAFAXINE HCL [Suspect]
     Dosage: UNK
     Dates: start: 201310

REACTIONS (12)
  - Hallucination [Unknown]
  - Mental disorder [Unknown]
  - Drug withdrawal syndrome [Unknown]
  - Hostility [Unknown]
  - Anger [Unknown]
  - Feeling abnormal [Unknown]
  - Depressed mood [Unknown]
  - Emotional poverty [Unknown]
  - Agitation [Unknown]
  - Confusional state [Unknown]
  - Memory impairment [Unknown]
  - Marital problem [Unknown]
